FAERS Safety Report 8803340 (Version 1)
Quarter: 2012Q4

REPORT INFORMATION
  Report Type: Report from Study
  Country: CA (occurrence: CA)
  Receive Date: 20120924
  Receipt Date: 20120924
  Transmission Date: 20130627
  Serious: Yes (Other)
  Sender: FDA-Public Use
  Company Number: CA-JNJFOC-20120904503

PATIENT
  Age: 61 None
  Sex: Male
  Weight: 109 kg

DRUGS (3)
  1. REMICADE [Suspect]
     Indication: ANKYLOSING SPONDYLITIS
     Route: 042
     Dates: start: 20120910
  2. REMICADE [Suspect]
     Indication: ANKYLOSING SPONDYLITIS
     Route: 042
     Dates: start: 20060627
  3. ALL OTHER THERAPEUTIC DRUGS [Concomitant]
     Indication: MYOCARDIAL INFARCTION
     Route: 065

REACTIONS (6)
  - Myocardial infarction [Unknown]
  - Tremor [Recovered/Resolved]
  - Hypotension [Recovered/Resolved]
  - Infusion related reaction [Recovering/Resolving]
  - Heart rate irregular [Recovered/Resolved]
  - Pallor [Recovering/Resolving]
